FAERS Safety Report 9903329 (Version 1)
Quarter: 2014Q1

REPORT INFORMATION
  Report Type: Spontaneous
  Country: US (occurrence: US)
  Receive Date: 20140217
  Receipt Date: 20140217
  Transmission Date: 20141002
  Serious: Yes (Hospitalization)
  Sender: FDA-Public Use
  Company Number: US-GILEAD-2011-0046857

PATIENT
  Age: 79 Year
  Sex: Male

DRUGS (1)
  1. LETAIRIS [Suspect]
     Indication: PRODUCT USED FOR UNKNOWN INDICATION
     Dosage: 5 MG, UNK
     Route: 048
     Dates: start: 20111027, end: 20111107

REACTIONS (5)
  - Drug hypersensitivity [Unknown]
  - Weight increased [Unknown]
  - Dyspnoea [Unknown]
  - Ascites [Unknown]
  - Oedema peripheral [Unknown]
